FAERS Safety Report 24537406 (Version 2)
Quarter: 2025Q2

REPORT INFORMATION
  Report Type: Spontaneous
  Country: US (occurrence: US)
  Receive Date: 20241022
  Receipt Date: 20250613
  Transmission Date: 20250716
  Serious: No
  Sender: ABBVIE
  Company Number: US-ABBVIE-5963816

PATIENT
  Age: 75 Year
  Sex: Female

DRUGS (3)
  1. LUMIGAN [Suspect]
     Active Substance: BIMATOPROST
     Indication: Intraocular pressure test
     Dosage: UNKNOWN. 0.01%
     Route: 047
     Dates: start: 2004
  2. LUMIGAN [Suspect]
     Active Substance: BIMATOPROST
     Indication: Glaucoma
  3. Covid-19 vaccines [Concomitant]
     Indication: Product used for unknown indication
     Dates: start: 2024

REACTIONS (3)
  - Device delivery system issue [Unknown]
  - Product container issue [Unknown]
  - Nasopharyngitis [Not Recovered/Not Resolved]

NARRATIVE: CASE EVENT DATE: 20241010
